FAERS Safety Report 18867984 (Version 1)
Quarter: 2021Q1

REPORT INFORMATION
  Report Type: Spontaneous
  Country: ES (occurrence: ES)
  Receive Date: 20210209
  Receipt Date: 20210209
  Transmission Date: 20210420
  Serious: Yes (Other)
  Sender: FDA-Public Use
  Company Number: ES-PFIZER INC-2021095573

PATIENT
  Age: 56 Year
  Sex: Female
  Weight: 80 kg

DRUGS (6)
  1. VANDRAL RETARD [Suspect]
     Active Substance: VENLAFAXINE HYDROCHLORIDE
     Indication: IRON DEFICIENCY ANAEMIA
     Dosage: 150 MG, 1X/DAY (FREQ:24 H)
     Route: 048
     Dates: start: 20200729
  2. SIMVASTATIN MYLAN [Concomitant]
     Active Substance: SIMVASTATIN
     Indication: TYPE IIA HYPERLIPIDAEMIA
     Dosage: 10 MG, 1X/DAY (FREQ:24 H)
     Route: 048
     Dates: start: 20200504
  3. LYRICA [Concomitant]
     Active Substance: PREGABALIN
     Indication: ENTHESOPATHY
     Dosage: 25 MG, 2X/DAY (FREQ:12 H)
     Route: 048
     Dates: start: 20200417
  4. DILIBAN [Concomitant]
     Active Substance: ACETAMINOPHEN\TRAMADOL HYDROCHLORIDE
     Indication: BONE DISORDER
     Dosage: 1 DF, 2X/DAY (FREQ:12 H)
     Route: 048
     Dates: start: 20180706
  5. CALCIO/VITAMINA D3 ROVI [Concomitant]
     Indication: BONE DISORDER
     Dosage: 1 DF, 1X/DAY (FREQ:24 H)
     Route: 048
     Dates: start: 20191214
  6. PANTOPRAZOL RATIOPHARM [Concomitant]
     Active Substance: PANTOPRAZOLE SODIUM
     Indication: DYSPEPSIA
     Dosage: 40 MG, 1X/DAY (FREQ:24 H)
     Route: 048
     Dates: start: 20150917

REACTIONS (5)
  - Dry mouth [Not Recovered/Not Resolved]
  - Pruritus [Not Recovered/Not Resolved]
  - Off label use [Not Recovered/Not Resolved]
  - Conjunctival hyperaemia [Not Recovered/Not Resolved]
  - Hypertension [Not Recovered/Not Resolved]

NARRATIVE: CASE EVENT DATE: 20200729
